FAERS Safety Report 6132023-9 (Version None)
Quarter: 2009Q1

REPORT INFORMATION
  Report Type: 
  Country: None (occurrence: None)
  Receive Date: 20090325
  Receipt Date: 20090313
  Transmission Date: 20090719
  Serious: Yes (Hospitalization, Other)
  Sender: FDA-Public Use
  Company Number: US-ELI_LILLY_AND_COMPANY-US200903003572

PATIENT
  Sex: Female

DRUGS (20)
  1. EVISTA [Suspect]
     Dosage: 60 MG, DAILY (1/D)
     Route: 065
  2. EVISTA [Suspect]
     Dosage: UNK, UNKNOWN
     Route: 065
  3. DILTIAZEM [Concomitant]
     Dosage: 240 MG, DAILY (1/D)
     Route: 065
  4. LISINOPRIL [Concomitant]
     Dosage: 10 MG, DAILY (1/D)
     Route: 065
  5. TRIAMTERENE AND HYDROCHLOROTHIAZIDE [Concomitant]
     Dosage: 37.5 MG, DAILY (1/D)
     Route: 065
  6. TRIAMTERENE AND HYDROCHLOROTHIAZIDE [Concomitant]
     Dosage: 25 MG, DAILY (1/D)
     Route: 065
  7. ACIPHEX [Concomitant]
     Dosage: 20 MG, DAILY (1/D)
     Route: 065
  8. POTASSIUM CHLORIDE [Concomitant]
     Dosage: 3.75 ML, DAILY (1/D)
     Route: 065
  9. CHLORDIAZEPOXIDE W/CLIDINIUM [Concomitant]
     Dosage: 2.5 MG, OTHER
     Route: 065
  10. ASPIRIN [Concomitant]
     Dosage: 81 MG, DAILY (1/D)
     Route: 065
  11. METAMUCIL [Concomitant]
     Dosage: UNK, DAILY (1/D)
     Route: 065
  12. ESTRACE [Concomitant]
     Dosage: UNK, MONTHLY (1/M)
     Route: 065
  13. NYSTATIN [Concomitant]
     Dosage: UNK, AS NEEDED
     Route: 065
  14. CALCIUM CITRATE WITH VITAMIN D [Concomitant]
     Dosage: UNK, UNKNOWN
     Route: 065
  15. LOVAZA [Concomitant]
     Dosage: 1000 MG, DAILY (1/D)
     Route: 065
  16. CENTRUM SILVER [Concomitant]
     Dosage: UNK, DAILY (1/D)
     Route: 065
  17. TYLENOL (CAPLET) [Concomitant]
     Dosage: 500 MG, DAILY (1/D)
     Route: 065
  18. GLUCOSAMINE W/CHONDROITIN [Concomitant]
     Dosage: UNK, DAILY (1/D)
     Route: 065
  19. MULTIVITAMIN [Concomitant]
     Dosage: UNK, UNKNOWN
     Route: 065
  20. VITAMIN B COMPLEX CAP [Concomitant]
     Dosage: UNK, UNKNOWN
     Route: 065

REACTIONS (6)
  - CHOLELITHIASIS [None]
  - GALLBLADDER OPERATION [None]
  - GASTROINTESTINAL DISORDER [None]
  - GASTROOESOPHAGEAL REFLUX DISEASE [None]
  - PANCREATITIS ACUTE [None]
  - ULCER [None]
